FAERS Safety Report 14451988 (Version 1)
Quarter: 2018Q1

REPORT INFORMATION
  Report Type: Spontaneous
  Country: US (occurrence: US)
  Receive Date: 20180129
  Receipt Date: 20180129
  Transmission Date: 20180509
  Serious: Yes (Other)
  Sender: FDA-Public Use
  Company Number: US-ABBVIE-17K-163-2194131-00

PATIENT
  Sex: Female

DRUGS (1)
  1. HUMIRA [Suspect]
     Active Substance: ADALIMUMAB
     Indication: HIDRADENITIS
     Route: 058

REACTIONS (7)
  - Immune system disorder [Unknown]
  - Stress [Unknown]
  - Hidradenitis [Unknown]
  - Pneumonia [Unknown]
  - Eating disorder [Unknown]
  - Surgery [Unknown]
  - General physical health deterioration [Unknown]
